FAERS Safety Report 22041946 (Version 6)
Quarter: 2023Q4

REPORT INFORMATION
  Report Type: Report from Study
  Country: CA (occurrence: CA)
  Receive Date: 20230227
  Receipt Date: 20231222
  Transmission Date: 20240110
  Serious: Yes (Death, Other)
  Sender: FDA-Public Use
  Company Number: CA-OTSUKA-2022_044692

PATIENT
  Age: 65 Year
  Sex: Female

DRUGS (3)
  1. CEDAZURIDINE\DECITABINE [Suspect]
     Active Substance: CEDAZURIDINE\DECITABINE
     Indication: Myelodysplastic syndrome
     Dosage: 5 PILLS/CYCLE
     Route: 065
     Dates: start: 20220801
  2. CEDAZURIDINE\DECITABINE [Suspect]
     Active Substance: CEDAZURIDINE\DECITABINE
     Dosage: 4 PILLS/CYCLE
     Route: 065
  3. CEDAZURIDINE\DECITABINE [Suspect]
     Active Substance: CEDAZURIDINE\DECITABINE
     Dosage: 3 PILLS/CYCLE
     Route: 065

REACTIONS (14)
  - Death [Fatal]
  - Transfusion [Unknown]
  - Platelet count decreased [Recovering/Resolving]
  - Hypersomnia [Unknown]
  - Chest pain [Unknown]
  - Haemoglobin increased [Unknown]
  - Alopecia [Unknown]
  - Full blood count abnormal [Unknown]
  - Arthralgia [Unknown]
  - Haemoptysis [Unknown]
  - Fatigue [Unknown]
  - Nausea [Unknown]
  - Haemoglobin decreased [Recovering/Resolving]
  - White blood cell count decreased [Recovering/Resolving]

NARRATIVE: CASE EVENT DATE: 20231213
